FAERS Safety Report 13700480 (Version 6)
Quarter: 2019Q2

REPORT INFORMATION
  Report Type: Report from Study
  Country: US (occurrence: US)
  Receive Date: 20170629
  Receipt Date: 20190422
  Transmission Date: 20190711
  Serious: Yes (Hospitalization)
  Sender: FDA-Public Use
  Company Number: US-EISAI MEDICAL RESEARCH-EC-2017-028878

PATIENT
  Age: 80 Year
  Sex: Male
  Weight: 61.9 kg

DRUGS (18)
  1. ASPIRIN. [Concomitant]
     Active Substance: ASPIRIN
  2. PRAMOXINE [Concomitant]
     Active Substance: PRAMOXINE
  3. LENVATINIB [Suspect]
     Active Substance: LENVATINIB
     Indication: TRANSITIONAL CELL CARCINOMA
     Route: 048
     Dates: start: 20170421, end: 20170621
  4. METRONIDAZOLE. [Concomitant]
     Active Substance: METRONIDAZOLE
  5. PEMBROLIZUMAB. [Suspect]
     Active Substance: PEMBROLIZUMAB
     Indication: TRANSITIONAL CELL CARCINOMA
     Route: 048
     Dates: start: 20170421, end: 20170601
  6. POLYETHYLENE GLYCOL [Concomitant]
     Active Substance: POLYETHYLENE GLYCOLS
  7. MORPHINE [Concomitant]
     Active Substance: MORPHINE
  8. IBUPROFEN. [Concomitant]
     Active Substance: IBUPROFEN
  9. INSULIN LISPRO [Concomitant]
     Active Substance: INSULIN LISPRO
  10. INSULIN GLARGINE [Concomitant]
     Active Substance: INSULIN GLARGINE
  11. VANCOMYCIN [Concomitant]
     Active Substance: VANCOMYCIN
  12. MESALAMINE. [Concomitant]
     Active Substance: MESALAMINE
  13. LIBRAX [Concomitant]
     Active Substance: CHLORDIAZEPOXIDE HYDROCHLORIDE\CLIDINIUM BROMIDE
  14. MICAFUNGIN. [Concomitant]
     Active Substance: MICAFUNGIN SODIUM
  15. ONDANSETRON [Concomitant]
     Active Substance: ONDANSETRON
  16. AZTREONAM. [Concomitant]
     Active Substance: AZTREONAM
  17. ACETAMINOPHEN/HYDROCODONE [Concomitant]
     Active Substance: ACETAMINOPHEN\HYDROCODONE
  18. METOCLOPRAMIDE. [Concomitant]
     Active Substance: METOCLOPRAMIDE

REACTIONS (1)
  - Large intestine perforation [Not Recovered/Not Resolved]

NARRATIVE: CASE EVENT DATE: 20170623
